FAERS Safety Report 18621728 (Version 4)
Quarter: 2021Q4

REPORT INFORMATION
  Report Type: Spontaneous
  Country: CA (occurrence: CA)
  Receive Date: 20201215
  Receipt Date: 20211029
  Transmission Date: 20220303
  Serious: Yes (Other)
  Sender: FDA-Public Use
  Company Number: CA-CELLTRION INC.-2020CA033690

PATIENT

DRUGS (3)
  1. INFLECTRA [Suspect]
     Active Substance: INFLIXIMAB-DYYB
     Indication: Ankylosing spondylitis
     Dosage: 700 MG, EVERY 8 WEEKS (Q 8 WEEKS)
     Route: 042
     Dates: start: 20201026
  2. INFLECTRA [Suspect]
     Active Substance: INFLIXIMAB-DYYB
     Dosage: 700 MG, EVERY 8 WEEKS (Q 8 WEEKS)
     Route: 042
     Dates: start: 20210311
  3. INFLECTRA [Suspect]
     Active Substance: INFLIXIMAB-DYYB
     Dosage: 700 MG, EVERY 8 WEEKS (Q 8 WEEKS)
     Route: 042
     Dates: start: 20210504, end: 202106

REACTIONS (7)
  - Chills [Unknown]
  - Pruritus [Unknown]
  - Throat irritation [Unknown]
  - Off label use [Unknown]
  - Urticaria [Unknown]
  - Erythema [Unknown]
  - Infusion related reaction [Unknown]

NARRATIVE: CASE EVENT DATE: 20201026
